FAERS Safety Report 10028480 (Version 4)
Quarter: 2014Q4

REPORT INFORMATION
  Report Type: Report from Study
  Country: JP (occurrence: JP)
  Receive Date: 20140321
  Receipt Date: 20141205
  Transmission Date: 20150528
  Serious: Yes (Death, Hospitalization)
  Sender: FDA-Public Use
  Company Number: JP-ABBVIE-14P-087-1213664-00

PATIENT
  Age: 70 Year
  Sex: Male
  Weight: 62 kg

DRUGS (14)
  1. METHYLPREDNISOLONE SODIUM SUCCINATE. [Concomitant]
     Active Substance: METHYLPREDNISOLONE SODIUM SUCCINATE
     Dates: start: 20140203, end: 20140205
  2. SITAGLIPTIN PHOSPHATE [Concomitant]
     Active Substance: SITAGLIPTIN PHOSPHATE
     Indication: PRODUCT USED FOR UNKNOWN INDICATION
     Route: 048
     Dates: end: 20140301
  3. SULFAMETHOXAZOLE-TRIMETHOPRIM (SMZ) [Concomitant]
     Active Substance: SULFAMETHOXAZOLE\TRIMETHOPRIM
     Indication: PROPHYLAXIS
     Route: 048
     Dates: end: 20140301
  4. PYRIDOXAL PHOSPHATE [Concomitant]
     Active Substance: PYRIDOXAL PHOSPHATE
     Indication: PROPHYLAXIS
     Route: 048
     Dates: start: 20131123, end: 20140301
  5. HUMIRA [Suspect]
     Active Substance: ADALIMUMAB
     Route: 058
     Dates: start: 20131021, end: 20140214
  6. ISONIAZID. [Concomitant]
     Active Substance: ISONIAZID
     Indication: ANTIBIOTIC PROPHYLAXIS
     Route: 048
     Dates: start: 20131123, end: 20140301
  7. HUMIRA [Suspect]
     Active Substance: ADALIMUMAB
     Route: 058
     Dates: start: 20131007, end: 20131007
  8. METHYLPREDNISOLONE SODIUM SUCCINATE. [Concomitant]
     Active Substance: METHYLPREDNISOLONE SODIUM SUCCINATE
     Indication: BEHCET^S SYNDROME
     Dates: start: 20130816, end: 20130818
  9. RABEPRAZOLE SODIUM. [Concomitant]
     Active Substance: RABEPRAZOLE SODIUM
     Indication: PROPHYLAXIS
     Route: 048
     Dates: end: 20140301
  10. METHYLPREDNISOLONE SODIUM SUCCINATE. [Concomitant]
     Active Substance: METHYLPREDNISOLONE SODIUM SUCCINATE
     Dates: start: 20131224, end: 20131226
  11. HUMIRA [Suspect]
     Active Substance: ADALIMUMAB
     Indication: BEHCET^S SYNDROME
     Route: 058
     Dates: start: 20130921, end: 20130921
  12. BETAMETHASONE DIPROPIONATE. [Concomitant]
     Active Substance: BETAMETHASONE DIPROPIONATE
     Indication: BEHCET^S SYNDROME
     Dosage: 5 MG, TAPERED BY 1.5 MG
     Route: 048
     Dates: start: 20130921, end: 20140301
  13. TACROLIMUS. [Concomitant]
     Active Substance: TACROLIMUS
     Dates: start: 20140117, end: 20140301
  14. TACROLIMUS. [Concomitant]
     Active Substance: TACROLIMUS
     Indication: BEHCET^S SYNDROME
     Route: 048
     Dates: start: 20140106, end: 20140116

REACTIONS (2)
  - Myelodysplastic syndrome transformation [Fatal]
  - Bile duct stone [Recovering/Resolving]

NARRATIVE: CASE EVENT DATE: 20140122
